FAERS Safety Report 21695818 (Version 2)
Quarter: 2022Q4

REPORT INFORMATION
  Report Type: Spontaneous
  Country: ES (occurrence: ES)
  Receive Date: 20221207
  Receipt Date: 20221209
  Transmission Date: 20230112
  Serious: Yes (Death, Other)
  Sender: FDA-Public Use
  Company Number: None

PATIENT
  Age: 86 Year
  Sex: Female

DRUGS (7)
  1. METHOTREXATE SODIUM [Suspect]
     Active Substance: METHOTREXATE SODIUM
     Indication: Rheumatoid arthritis
     Dates: start: 2021, end: 2022
  2. DEFLAZACORT [Suspect]
     Active Substance: DEFLAZACORT
     Dosage: 3 MG, DAILY
     Route: 048
     Dates: start: 20161228
  3. FOLIC ACID [Suspect]
     Active Substance: FOLIC ACID
     Dosage: 2/7 DAYS
     Route: 048
     Dates: start: 20101220
  4. CLORAZEPATE DIPOTASSIUM [Suspect]
     Active Substance: CLORAZEPATE DIPOTASSIUM
     Dosage: 1 DF, DAILY
     Route: 048
     Dates: start: 20080410
  5. CHOLESTYRAMINE [Suspect]
     Active Substance: CHOLESTYRAMINE
     Dosage: 1 DF, DAILY
     Route: 048
     Dates: start: 20100120
  6. METHOTREXATE SODIUM [Suspect]
     Active Substance: METHOTREXATE SODIUM
     Dosage: 1/7 DAYS
     Route: 058
     Dates: start: 20161223
  7. AMLODIPINE BESYLATE\VALSARTAN [Suspect]
     Active Substance: AMLODIPINE BESYLATE\VALSARTAN
     Indication: Hypertension
     Dosage: 1 DF, DAILY
     Route: 048
     Dates: start: 20220126

REACTIONS (1)
  - Pancytopenia [Fatal]

NARRATIVE: CASE EVENT DATE: 20220130
